FAERS Safety Report 4615892-0 (Version None)
Quarter: 2005Q1

REPORT INFORMATION
  Report Type: 
  Country: None (occurrence: None)
  Receive Date: 20050318
  Receipt Date: 20050304
  Transmission Date: 20050727
  Serious: No
  Sender: FDA-Public Use
  Company Number: 2005SE01442

PATIENT
  Age: 76 Year
  Sex: Female

DRUGS (1)
  1. SEROQUEL [Suspect]
     Indication: SCHIZOPHRENIA
     Dosage: 100 MG + 0 + 200 MG TABLETS DAILY
     Dates: start: 20050112, end: 20050223

REACTIONS (2)
  - FACE OEDEMA [None]
  - PHARYNGEAL OEDEMA [None]
